FAERS Safety Report 5655836-6 (Version None)
Quarter: 2008Q1

REPORT INFORMATION
  Report Type: 
  Country: None (occurrence: None)
  Receive Date: 20080307
  Receipt Date: 20080226
  Transmission Date: 20080703
  Serious: Yes (Other)
  Sender: FDA-Public Use
  Company Number: GB-PFIZER INC-2008009842

PATIENT
  Sex: Female
  Weight: 74.5 kg

DRUGS (1)
  1. CHANTIX [Suspect]
     Indication: EX-SMOKER
     Route: 048
     Dates: start: 20071201, end: 20080128

REACTIONS (3)
  - DEPRESSION [None]
  - GINGIVAL BLEEDING [None]
  - MOOD SWINGS [None]
